FAERS Safety Report 13504756 (Version 1)
Quarter: 2017Q2

REPORT INFORMATION
  Report Type: Spontaneous
  Country: FI (occurrence: FI)
  Receive Date: 20170502
  Receipt Date: 20170502
  Transmission Date: 20170830
  Serious: Yes (Life-Threatening, Hospitalization, Disabling)
  Sender: FDA-Public Use
  Company Number: FI-TEVA-763122ISR

PATIENT
  Age: 21 Year
  Sex: Male

DRUGS (5)
  1. DIAPAM [Concomitant]
     Active Substance: DIAZEPAM
     Dosage: 30 MILLIGRAM DAILY;
     Route: 048
     Dates: start: 20160131
  2. DORMICUM 15 MG [Concomitant]
     Indication: INSOMNIA
     Dosage: 15 MILLIGRAM DAILY;
     Route: 048
     Dates: start: 20160131
  3. TRAMAL RETARD 100 MG [Concomitant]
     Active Substance: TRAMADOL HYDROCHLORIDE
     Indication: BACK PAIN
     Dosage: 300 MILLIGRAM DAILY;
     Dates: start: 20160131
  4. ISOTRETINOIN ACTAVIS 10 MG [Suspect]
     Active Substance: ISOTRETINOIN
     Indication: ACNE
     Dosage: 30 MILLIGRAM DAILY;
     Route: 048
     Dates: start: 20161214, end: 20170116
  5. XANOR DEPOT 2 MG [Concomitant]
     Dosage: 4 MILLIGRAM DAILY;
     Dates: start: 20160131

REACTIONS (9)
  - Cervical vertebral fracture [Not Recovered/Not Resolved]
  - Pelvic fracture [Not Recovered/Not Resolved]
  - Comminuted fracture [Not Recovered/Not Resolved]
  - Apathy [Not Recovered/Not Resolved]
  - Suicide attempt [Not Recovered/Not Resolved]
  - Confusional state [Not Recovered/Not Resolved]
  - Feeling abnormal [Not Recovered/Not Resolved]
  - Humerus fracture [Not Recovered/Not Resolved]
  - Panic attack [Not Recovered/Not Resolved]

NARRATIVE: CASE EVENT DATE: 20170116
